FAERS Safety Report 8489490-5 (Version None)
Quarter: 2012Q3

REPORT INFORMATION
  Report Type: 
  Country: None (occurrence: None)
  Receive Date: 20120705
  Receipt Date: 20120625
  Transmission Date: 20120928
  Serious: Yes (Other)
  Sender: FDA-Public Use
  Company Number: US-ASTRAZENECA-2012SE29094

PATIENT
  Age: 44 Year
  Sex: Female
  Weight: 56.7 kg

DRUGS (5)
  1. NEXIUM [Suspect]
     Route: 048
  2. PROMETHAZINE [Concomitant]
  3. IRON [Concomitant]
  4. MULTI-VITAMINS [Concomitant]
  5. FLUCONAZOLE [Concomitant]

REACTIONS (11)
  - HYPOPHAGIA [None]
  - WEIGHT DECREASED [None]
  - VOMITING [None]
  - GASTRIC ULCER [None]
  - WEIGHT FLUCTUATION [None]
  - PAIN [None]
  - PERFORATED ULCER [None]
  - MALNUTRITION [None]
  - REGURGITATION [None]
  - NAUSEA [None]
  - ACUTE ABDOMEN [None]
